FAERS Safety Report 21404225 (Version 2)
Quarter: 2022Q4

REPORT INFORMATION
  Report Type: Spontaneous
  Country: US (occurrence: None)
  Receive Date: 20221003
  Receipt Date: 20221004
  Transmission Date: 20230112
  Serious: Yes (Hospitalization, Other)
  Sender: FDA-Public Use
  Company Number: US-ROCHE-3191753

PATIENT
  Sex: Male

DRUGS (1)
  1. ESBRIET [Suspect]
     Active Substance: PIRFENIDONE
     Indication: Product used for unknown indication
     Dosage: 801 MG TID ORAL
     Route: 048
     Dates: start: 202203, end: 202209

REACTIONS (2)
  - Dyspnoea [Not Recovered/Not Resolved]
  - Pulmonary fibrosis [Unknown]
